FAERS Safety Report 7897100-0 (Version None)
Quarter: 2011Q4

REPORT INFORMATION
  Report Type: 
  Country: None (occurrence: None)
  Receive Date: 20111107
  Receipt Date: 20111026
  Transmission Date: 20120403
  Serious: Yes (Other)
  Sender: FDA-Public Use
  Company Number: US-JNJFOC-20111101113

PATIENT
  Age: 56 Year
  Sex: Female
  Weight: 55.34 kg

DRUGS (2)
  1. DOXYCYCLINE [Concomitant]
     Indication: GINGIVAL INFECTION
     Dosage: INITIATED 10-15 DAYS AGO
     Route: 065
     Dates: start: 20111001
  2. COOLMINT LISTERINE [Suspect]
     Indication: PERIODONTAL DISEASE
     Dosage: ABOUT A CAPFUL IN A PAPER CUP
     Route: 061
     Dates: start: 20111017, end: 20111018

REACTIONS (3)
  - LIP EXFOLIATION [None]
  - OFF LABEL USE [None]
  - APPLICATION SITE BURN [None]
